FAERS Safety Report 10575668 (Version 5)
Quarter: 2015Q2

REPORT INFORMATION
  Report Type: Spontaneous
  Country: US (occurrence: US)
  Receive Date: 20141111
  Receipt Date: 20150430
  Transmission Date: 20150821
  Serious: Yes (Hospitalization, Other)
  Sender: FDA-Public Use
  Company Number: US-PFIZER INC-2014308384

PATIENT
  Age: 76 Year
  Sex: Female

DRUGS (17)
  1. NYSTAFORM [Concomitant]
     Dosage: UNK
  2. LODOSYN [Concomitant]
     Active Substance: CARBIDOPA
     Dosage: 25 MG, 4X/DAY
     Route: 048
     Dates: start: 2005
  3. LYRICA [Suspect]
     Active Substance: PREGABALIN
     Indication: DIABETIC NEUROPATHY
     Dosage: 100 MG, 2X/DAY (1 CAPSULE 2 TIMES A DAY)
     Route: 048
  4. SINEMET CR [Concomitant]
     Active Substance: CARBIDOPA\LEVODOPA
     Dosage: [CARBIDOPA 50MG]/[ LEVODOPA200MG] 1 DF, 1X/DAY, Q HS
     Route: 048
     Dates: start: 2005
  5. GLUCOPHAGE [Concomitant]
     Active Substance: METFORMIN HYDROCHLORIDE
     Indication: DIABETES MELLITUS
     Dosage: 1000 MG, DAILY
     Route: 048
  6. LYRICA [Suspect]
     Active Substance: PREGABALIN
     Indication: HYPOAESTHESIA
  7. GLIPIZIDE (ER) [Concomitant]
     Indication: DIABETES MELLITUS
     Dosage: 2.5 MG, 1X/DAY (IN MORNING)
     Route: 048
     Dates: start: 2014, end: 2014
  8. LANOXIN [Concomitant]
     Active Substance: DIGOXIN
     Dosage: UNK
  9. VITAMIN D [Concomitant]
     Active Substance: CHOLECALCIFEROL
     Dosage: 28000 IU, WEEKLY
  10. ASPIRIN E. C. [Concomitant]
     Dosage: 81 MG, DAILY
     Route: 048
  11. LYRICA [Suspect]
     Active Substance: PREGABALIN
     Indication: NEUROPATHY PERIPHERAL
  12. METHOCARBAMOL. [Concomitant]
     Active Substance: METHOCARBAMOL
     Dosage: 750 MG, 2X/DAY
     Route: 048
     Dates: start: 1980, end: 2013
  13. PROTONIX [Concomitant]
     Active Substance: PANTOPRAZOLE SODIUM
     Dosage: 40 MG, 2X/DAY
     Route: 048
     Dates: start: 2006
  14. SINEMET [Concomitant]
     Active Substance: CARBIDOPA\LEVODOPA
     Dosage: [CARBIDOPA 25MG]/ [LEVODOPA100MG]1.5 DF, 4X/DAY
     Route: 048
     Dates: start: 2005
  15. VERAPAMIL HCL [Concomitant]
     Active Substance: VERAPAMIL HYDROCHLORIDE
     Dosage: 80 MG, 2X/DAY
     Route: 048
     Dates: start: 1987
  16. PERCOCET [Concomitant]
     Active Substance: ACETAMINOPHEN\OXYCODONE HYDROCHLORIDE
     Dosage: [OXYCODONE 5MG]/[ACETAMINOPHEN 325MG], 1 DF, EVERY 6 HOURS AS NEEDED,OFF + ON
     Route: 048
     Dates: start: 2006, end: 2014
  17. HYDROMORPHONE [Concomitant]
     Active Substance: HYDROMORPHONE
     Dosage: 2 MG, UNK (Q 4-6 HOURS)

REACTIONS (4)
  - Depressed mood [Recovered/Resolved]
  - Blood pressure increased [Recovered/Resolved]
  - Asthenia [Recovered/Resolved]
  - Drug withdrawal syndrome [Recovered/Resolved]

NARRATIVE: CASE EVENT DATE: 201406
